FAERS Safety Report 9128517 (Version 1)
Quarter: 2013Q1

REPORT INFORMATION
  Report Type: Spontaneous
  Country: US (occurrence: US)
  Receive Date: 20130228
  Receipt Date: 20130228
  Transmission Date: 20140127
  Serious: No
  Sender: FDA-Public Use
  Company Number: US-GLAXOSMITHKLINE-A1000279A

PATIENT
  Age: 26 Year
  Sex: Female

DRUGS (3)
  1. IMITREX [Suspect]
     Indication: MIGRAINE
     Dosage: 6MG SINGLE DOSE
     Route: 042
     Dates: start: 20121107
  2. TORADOL [Concomitant]
  3. DILAUDID [Concomitant]

REACTIONS (1)
  - Drug administration error [Unknown]
